FAERS Safety Report 11384400 (Version 1)
Quarter: 2015Q3

REPORT INFORMATION
  Report Type: Spontaneous
  Country: US (occurrence: US)
  Receive Date: 20150811
  Receipt Date: 20150811
  Transmission Date: 20151125
  Serious: No
  Sender: FDA-Public Use
  Company Number: US-ELI_LILLY_AND_COMPANY-US201101004461

PATIENT
  Age: 67 Year
  Sex: Female

DRUGS (13)
  1. GUAIFENESIN. [Concomitant]
     Active Substance: GUAIFENESIN
  2. SINGULAIR [Concomitant]
     Active Substance: MONTELUKAST SODIUM
  3. LANTUS [Concomitant]
     Active Substance: INSULIN GLARGINE
  4. CELIPROLOL [Concomitant]
     Active Substance: CELIPROLOL
  5. POTASSIUM CHLORIDE. [Concomitant]
     Active Substance: POTASSIUM CHLORIDE
  6. ZYRTEC [Concomitant]
     Active Substance: CETIRIZINE HYDROCHLORIDE
  7. ADVAIR HFA [Concomitant]
     Active Substance: FLUTICASONE PROPIONATE\SALMETEROL XINAFOATE
  8. ADCIRCA [Suspect]
     Active Substance: TADALAFIL
     Indication: PULMONARY HYPERTENSION
  9. LOMUDAL [Concomitant]
  10. TREMADOL [Concomitant]
     Active Substance: TRAMADOL HYDROCHLORIDE
  11. LASIX [Concomitant]
     Active Substance: FUROSEMIDE
  12. DIGITOXIN [Concomitant]
     Active Substance: DIGITOXIN
  13. REMODULIN [Concomitant]
     Active Substance: TREPROSTINIL

REACTIONS (1)
  - Rash [Recovered/Resolved]
